FAERS Safety Report 6103140-4 (Version None)
Quarter: 2009Q1

REPORT INFORMATION
  Report Type: 
  Country: None (occurrence: None)
  Receive Date: 20090227
  Receipt Date: 20090225
  Transmission Date: 20090719
  Serious: Yes (Hospitalization)
  Sender: FDA-Public Use
  Company Number: SP02177

PATIENT
  Age: 66 Year
  Sex: Male

DRUGS (4)
  1. MESALAMINE [Suspect]
     Indication: COLITIS COLLAGENOUS
     Dosage: 3 GM (3 GM, 1 IN 1 D), ORAL
     Route: 048
     Dates: start: 20081117, end: 20081201
  2. SIMVASTATIN [Concomitant]
  3. MAGNYL (ACETYLSALICYLIC ACID) [Concomitant]
  4. BISOPROLOL [Concomitant]

REACTIONS (4)
  - DEHYDRATION [None]
  - ELECTROLYTE IMBALANCE [None]
  - INFECTION [None]
  - PYREXIA [None]
